FAERS Safety Report 13497647 (Version 5)
Quarter: 2017Q4

REPORT INFORMATION
  Report Type: Spontaneous
  Country: US (occurrence: US)
  Receive Date: 20170428
  Receipt Date: 20171129
  Transmission Date: 20180320
  Serious: Yes (Hospitalization, Other)
  Sender: FDA-Public Use
  Company Number: US-INCYTE CORPORATION-2017IN003173

PATIENT

DRUGS (6)
  1. JAKAFI [Suspect]
     Active Substance: RUXOLITINIB
     Dosage: 10 MG, BID
     Route: 048
     Dates: start: 2017, end: 20171107
  2. JAKAFI [Suspect]
     Active Substance: RUXOLITINIB
     Dosage: 20 MG, BID
     Route: 048
     Dates: start: 20170414, end: 2017
  3. JAKAFI [Suspect]
     Active Substance: RUXOLITINIB
     Indication: MYELOFIBROSIS
     Dosage: 20 MG, BID
     Route: 048
     Dates: start: 20170413, end: 20170721
  4. VALSARTAN. [Concomitant]
     Active Substance: VALSARTAN
     Indication: PRODUCT USED FOR UNKNOWN INDICATION
  5. AMLODIPINE [Concomitant]
     Active Substance: AMLODIPINE BESYLATE
     Indication: PRODUCT USED FOR UNKNOWN INDICATION
  6. PANTOPRAZOLE [Concomitant]
     Active Substance: PANTOPRAZOLE
     Indication: PRODUCT USED FOR UNKNOWN INDICATION
     Dosage: UNK

REACTIONS (21)
  - Fatigue [Unknown]
  - Glossodynia [Unknown]
  - Migraine [Unknown]
  - Noninfective gingivitis [Unknown]
  - Red blood cell count decreased [Unknown]
  - Hypertension [Unknown]
  - Asthenia [Unknown]
  - Photophobia [Unknown]
  - Dizziness [Recovered/Resolved]
  - Stomatitis [Unknown]
  - Transaminases increased [Recovering/Resolving]
  - Diarrhoea [Not Recovered/Not Resolved]
  - Pain in extremity [Recovering/Resolving]
  - Gait inability [Unknown]
  - Vision blurred [Unknown]
  - Malaise [Unknown]
  - Throat irritation [Unknown]
  - Headache [Unknown]
  - Anaemia [Unknown]
  - Asthenopia [Unknown]
  - Contusion [Unknown]

NARRATIVE: CASE EVENT DATE: 20170414
